FAERS Safety Report 6706070-X (Version None)
Quarter: 2010Q2

REPORT INFORMATION
  Report Type: 
  Country: None (occurrence: None)
  Receive Date: 20100430
  Receipt Date: 20100430
  Transmission Date: 20101027
  Serious: Yes (Other)
  Sender: FDA-Public Use
  Company Number: None

PATIENT
  Age: 54 Year
  Sex: Female
  Weight: 58.0604 kg

DRUGS (6)
  1. VITAMIN D [Suspect]
     Indication: VITAMIN D DEFICIENCY
     Dosage: 50 000 IU WEEKLY P.O.
     Route: 048
     Dates: start: 20100311
  2. VITAMIN D [Suspect]
     Indication: WEIGHT DECREASED
     Dosage: 50 000 IU WEEKLY P.O.
     Route: 048
     Dates: start: 20100311
  3. VITAMIN D [Suspect]
     Indication: VITAMIN D DEFICIENCY
     Dosage: 50 000 IU WEEKLY P.O.
     Route: 048
     Dates: start: 20100318
  4. VITAMIN D [Suspect]
     Indication: WEIGHT DECREASED
     Dosage: 50 000 IU WEEKLY P.O.
     Route: 048
     Dates: start: 20100318
  5. VITAMIN D [Suspect]
     Indication: VITAMIN D DEFICIENCY
     Dosage: 50 000 IU WEEKLY P.O.
     Route: 048
     Dates: start: 20100325
  6. VITAMIN D [Suspect]
     Indication: WEIGHT DECREASED
     Dosage: 50 000 IU WEEKLY P.O.
     Route: 048
     Dates: start: 20100325

REACTIONS (3)
  - ABDOMINAL DISTENSION [None]
  - ABDOMINAL PAIN UPPER [None]
  - VOMITING PROJECTILE [None]
